FAERS Safety Report 7986607-3 (Version None)
Quarter: 2011Q4

REPORT INFORMATION
  Report Type: 
  Country: None (occurrence: None)
  Receive Date: 20111216
  Receipt Date: 20110803
  Transmission Date: 20120403
  Serious: No
  Sender: FDA-Public Use
  Company Number: US-BRISTOL-MYERS SQUIBB COMPANY-15948078

PATIENT
  Age: 56 Year
  Sex: Male

DRUGS (5)
  1. ATIVAN [Concomitant]
     Dosage: PRN
  2. TRAZODONE HCL [Concomitant]
     Dosage: 1DF= 50-200MG PRN.
  3. ZOLOFT [Concomitant]
  4. AMBIEN CR [Concomitant]
  5. ABILIFY [Suspect]
     Dosage: STARTED 2MG PO QD 2 WEEKS AGO INCREASED THE DOSE TO 5MG PO QD.
     Route: 048
     Dates: start: 20110701, end: 20110731

REACTIONS (1)
  - OEDEMA PERIPHERAL [None]
